FAERS Safety Report 6201680-0 (Version None)
Quarter: 2009Q2

REPORT INFORMATION
  Report Type: 
  Country: None (occurrence: None)
  Receive Date: 20090526
  Receipt Date: 20090514
  Transmission Date: 20091009
  Serious: Yes (Other)
  Sender: FDA-Public Use
  Company Number: CA-BAYER-200832915NA

PATIENT
  Age: 16 Year
  Sex: Female

DRUGS (1)
  1. YASMIN [Suspect]
     Indication: ANOVULATORY CYCLE
     Route: 048
     Dates: start: 20070801, end: 20071230

REACTIONS (3)
  - MUSCLE RUPTURE [None]
  - OEDEMA PERIPHERAL [None]
  - WEIGHT INCREASED [None]
